FAERS Safety Report 8506018-1 (Version None)
Quarter: 2012Q3

REPORT INFORMATION
  Report Type: 
  Country: None (occurrence: None)
  Receive Date: 20120712
  Receipt Date: 20120705
  Transmission Date: 20120928
  Serious: Yes (Other)
  Sender: FDA-Public Use
  Company Number: AU-PFIZER INC-2012147824

PATIENT
  Sex: Female

DRUGS (3)
  1. CLEOCIN HYDROCHLORIDE [Suspect]
     Indication: INFECTION PROPHYLAXIS
     Dosage: 600 MG, SINGLE
     Route: 048
  2. CARVEDILOL [Concomitant]
     Dosage: UNK
  3. PERINDOPRIL ERBUMINE [Interacting]
     Dosage: UNK

REACTIONS (5)
  - DRUG INTERACTION [None]
  - CYSTITIS [None]
  - HALLUCINATION [None]
  - DIARRHOEA HAEMORRHAGIC [None]
  - HEADACHE [None]
